FAERS Safety Report 17826706 (Version 2)
Quarter: 2020Q2

REPORT INFORMATION
  Report Type: Spontaneous
  Country: US (occurrence: US)
  Receive Date: 20200526
  Receipt Date: 20200529
  Transmission Date: 20200714
  Serious: No
  Sender: FDA-Public Use
  Company Number: US-TEVA-2020-US-1240221

PATIENT
  Sex: Male

DRUGS (1)
  1. BUPRENORPHINE. [Suspect]
     Active Substance: BUPRENORPHINE
     Dosage: 20 MCG/HR
     Route: 062
     Dates: start: 20200414

REACTIONS (6)
  - Product adhesion issue [Unknown]
  - Application site erythema [Unknown]
  - Incorrect product administration duration [Unknown]
  - Symptom recurrence [Unknown]
  - Application site pruritus [Unknown]
  - Product substitution issue [Unknown]
